FAERS Safety Report 13368712 (Version 2)
Quarter: 2017Q2

REPORT INFORMATION
  Report Type: Spontaneous
  Country: GB (occurrence: GB)
  Receive Date: 20170324
  Receipt Date: 20170411
  Transmission Date: 20170830
  Serious: Yes (Other)
  Sender: FDA-Public Use
  Company Number: GB-009507513-1703GBR010248

PATIENT
  Age: 64 Year
  Sex: Male
  Weight: 67.58 kg

DRUGS (3)
  1. ALENDRONATE SODIUM. [Suspect]
     Active Substance: ALENDRONATE SODIUM
     Indication: OSTEOPOROSIS
     Dosage: 70 MG, FREQUENCY NOT REPORTED
     Route: 048
     Dates: start: 20170129, end: 20170219
  2. TRUVADA [Concomitant]
     Active Substance: EMTRICITABINE\TENOFOVIR DISOPROXIL FUMARATE
  3. NEVIRAPINE. [Concomitant]
     Active Substance: NEVIRAPINE

REACTIONS (4)
  - Tinnitus [Recovering/Resolving]
  - Paraesthesia oral [Recovered/Resolved]
  - Ear congestion [Recovering/Resolving]
  - Hypoaesthesia oral [Recovered/Resolved]

NARRATIVE: CASE EVENT DATE: 20170129
